FAERS Safety Report 19813733 (Version 1)
Quarter: 2021Q3

REPORT INFORMATION
  Report Type: Spontaneous
  Country: US (occurrence: US)
  Receive Date: 20210907
  Receipt Date: 20210907
  Transmission Date: 20211014
  Serious: No
  Sender: FDA-Public Use
  Company Number: None

PATIENT
  Age: 63 Year
  Sex: Female

DRUGS (6)
  1. NAFCILLIN 2 GM/100ML BAXTER HEALTHCARE CORP [Suspect]
     Active Substance: NAFCILLIN SODIUM
     Indication: STAPHYLOCOCCAL INFECTION
     Route: 042
     Dates: start: 20210626, end: 20210715
  2. COMBIVIR [Concomitant]
     Active Substance: LAMIVUDINE\ZIDOVUDINE
  3. ELIQUIS [Concomitant]
     Active Substance: APIXABAN
  4. PRAVASTATIN. [Concomitant]
     Active Substance: PRAVASTATIN
  5. SUSTIVA [Concomitant]
     Active Substance: EFAVIRENZ
  6. PATOPRAZOLE [Concomitant]

REACTIONS (2)
  - Pruritus [None]
  - Urticaria [None]

NARRATIVE: CASE EVENT DATE: 20210712
